FAERS Safety Report 18226701 (Version 1)
Quarter: 2020Q3

REPORT INFORMATION
  Report Type: Spontaneous
  Country: US (occurrence: US)
  Receive Date: 20200902
  Receipt Date: 20200902
  Transmission Date: 20201103
  Serious: Yes (Other)
  Sender: FDA-Public Use
  Company Number: None

PATIENT
  Age: 81 Year
  Sex: Male
  Weight: 92 kg

DRUGS (1)
  1. VALACYCLOVIR (VALACYCLOVIR HCL 500MG TAB) [Suspect]
     Active Substance: VALACYCLOVIR HYDROCHLORIDE
     Dosage: ?          OTHER FREQUENCY:AM;?
     Route: 048
     Dates: start: 20200517, end: 20200518

REACTIONS (3)
  - Neurotoxicity [None]
  - Confusional state [None]
  - Hallucination [None]

NARRATIVE: CASE EVENT DATE: 20200517
